FAERS Safety Report 9787914 (Version 2)
Quarter: 2013Q4

REPORT INFORMATION
  Report Type: Spontaneous
  Country: JP (occurrence: JP)
  Receive Date: 20131230
  Receipt Date: 20131230
  Transmission Date: 20140711
  Serious: Yes (Hospitalization)
  Sender: FDA-Public Use
  Company Number: JP-MPIJNJ-2013JNJ001342

PATIENT
  Sex: 0

DRUGS (17)
  1. VELCADE [Suspect]
     Indication: PLASMA CELL MYELOMA
     Dosage: 1.3 MG/M2, UNK
     Route: 058
     Dates: start: 20130913
  2. LY2127399 [Suspect]
     Indication: PLASMA CELL MYELOMA
     Dosage: 300 MG, UNK
     Route: 042
     Dates: start: 20130910
  3. DEXAMETHASONE [Suspect]
     Indication: PLASMA CELL MYELOMA
     Dosage: 20 MG, QD
     Route: 048
     Dates: start: 20130910
  4. VORICONAZOLE [Suspect]
     Indication: PRODUCT USED FOR UNKNOWN INDICATION
     Route: 065
  5. LOXOPROFEN SODIUM [Concomitant]
     Indication: PYREXIA
     Dosage: UNK
     Dates: start: 20131204, end: 20131207
  6. GARENOXACIN MESILATE [Concomitant]
     Indication: PNEUMONIA
     Dosage: UNK
     Dates: start: 20131204, end: 20131212
  7. FLUCONAZOLE [Concomitant]
     Indication: PNEUMONIA
     Dosage: UNK
     Dates: start: 20131204, end: 20131206
  8. VORICONAZOLE [Concomitant]
     Indication: BRONCHOPULMONARY ASPERGILLOSIS
     Dosage: UNK
     Dates: start: 20131206, end: 20131210
  9. MAGNESIUM OXIDE [Concomitant]
     Indication: CONSTIPATION
     Dosage: UNK
     Route: 048
     Dates: start: 20100918
  10. LYRICA [Concomitant]
     Indication: PERIPHERAL SENSORY NEUROPATHY
     Dosage: 75 MG, QD
     Route: 048
     Dates: start: 20110111
  11. NEXIUM                             /01479302/ [Concomitant]
     Indication: GASTRITIS PROPHYLAXIS
     Dosage: 20 MG, QD
     Route: 048
     Dates: start: 20130910
  12. DAIPHEN [Concomitant]
     Indication: INFECTION PROPHYLAXIS
     Dosage: 80 MG, QD
     Route: 048
     Dates: start: 20130910
  13. ACICLOVIR [Concomitant]
     Indication: INFECTION PROPHYLAXIS
     Dosage: 200 MG, BID
     Route: 048
     Dates: start: 20130910
  14. MECOBALAMIN [Concomitant]
     Indication: PERIPHERAL SENSORY NEUROPATHY
     Dosage: 500 ?G, TID
     Route: 048
     Dates: start: 20101116
  15. GATIFLO [Concomitant]
     Indication: CONJUNCTIVITIS
     Dosage: UNK
     Route: 047
     Dates: start: 20130816
  16. ODOMEL [Concomitant]
     Indication: CONJUNCTIVITIS
     Dosage: UNK
     Route: 047
     Dates: start: 20130816
  17. AZUNOL #1 [Concomitant]
     Indication: INFECTION PROPHYLAXIS
     Dosage: UNK
     Route: 049
     Dates: start: 20131115

REACTIONS (2)
  - Bronchopulmonary aspergillosis [Recovering/Resolving]
  - Drug interaction [Unknown]
